FAERS Safety Report 7776686-0 (Version None)
Quarter: 2011Q3

REPORT INFORMATION
  Report Type: 
  Country: None (occurrence: None)
  Receive Date: 20110926
  Receipt Date: 20110216
  Transmission Date: 20111222
  Serious: No
  Sender: FDA-Public Use
  Company Number: US-BAYER-2011-017349

PATIENT
  Age: 66 Year
  Sex: Female
  Weight: 93 kg

DRUGS (10)
  1. TREAN [Concomitant]
  2. BARIUM [Concomitant]
     Indication: COMPUTERISED TOMOGRAM
     Dosage: UNK
     Route: 048
     Dates: start: 20110216, end: 20110216
  3. BARIUM [Concomitant]
     Indication: COLON CANCER
  4. LEVEMIR [Concomitant]
     Indication: TYPE 2 DIABETES MELLITUS
  5. ULTRAVIST 150 [Suspect]
     Indication: COLON CANCER
  6. AVAPRO [Concomitant]
  7. NOVOLOG [Concomitant]
     Indication: TYPE 2 DIABETES MELLITUS
  8. LYOVAC [Concomitant]
  9. SPIRONOLACTONE [Concomitant]
  10. ULTRAVIST 150 [Suspect]
     Indication: COMPUTERISED TOMOGRAM
     Dosage: 70 ML, ONCE
     Route: 042
     Dates: start: 20110216, end: 20110216

REACTIONS (1)
  - NAUSEA [None]
